FAERS Safety Report 19813856 (Version 1)
Quarter: 2021Q3

REPORT INFORMATION
  Report Type: Spontaneous
  Country: US (occurrence: US)
  Receive Date: 20210909
  Receipt Date: 20210909
  Transmission Date: 20211014
  Serious: Yes (Other)
  Sender: FDA-Public Use
  Company Number: US-ALLERGAN-2117176US

PATIENT
  Sex: Female

DRUGS (1)
  1. BYSTOLIC [Suspect]
     Active Substance: NEBIVOLOL HYDROCHLORIDE
     Indication: PRODUCT USED FOR UNKNOWN INDICATION
     Dosage: UNK

REACTIONS (7)
  - Blood alkaline phosphatase increased [Unknown]
  - Product taste abnormal [Unknown]
  - Macular degeneration [Unknown]
  - Suspected counterfeit product [Unknown]
  - Serum ferritin increased [Unknown]
  - Drug ineffective [Unknown]
  - Product odour abnormal [Unknown]
